FAERS Safety Report 7765075-0 (Version None)
Quarter: 2011Q3

REPORT INFORMATION
  Report Type: 
  Country: None (occurrence: None)
  Receive Date: 20110921
  Receipt Date: 20110914
  Transmission Date: 20111222
  Serious: Yes (Other)
  Sender: FDA-Public Use
  Company Number: US-AMGEN-USASP2011047261

PATIENT
  Age: 62 Year
  Sex: Female

DRUGS (2)
  1. ENBREL [Suspect]
     Indication: PSORIATIC ARTHROPATHY
     Dosage: 50 MG, QWK
     Dates: start: 20110719, end: 20110913
  2. ENBREL [Suspect]
     Indication: PSORIASIS

REACTIONS (4)
  - OEDEMA PERIPHERAL [None]
  - LOCAL SWELLING [None]
  - JOINT SWELLING [None]
  - PSORIASIS [None]
